FAERS Safety Report 11103689 (Version 1)
Quarter: 2015Q2

REPORT INFORMATION
  Report Type: Spontaneous
  Country: US (occurrence: None)
  Receive Date: 20150508
  Receipt Date: 20150508
  Transmission Date: 20150821
  Serious: No
  Sender: FDA-Public Use
  Company Number: None

PATIENT
  Age: 42 Year
  Sex: Female

DRUGS (1)
  1. TEMOZOLOMIDE 250 [Suspect]
     Active Substance: TEMOZOLOMIDE
     Dates: start: 201408, end: 20150410

REACTIONS (1)
  - Treatment failure [None]

NARRATIVE: CASE EVENT DATE: 20150310
